FAERS Safety Report 9729530 (Version 3)
Quarter: 2015Q3

REPORT INFORMATION
  Report Type: Spontaneous
  Country: US (occurrence: US)
  Receive Date: 20131204
  Receipt Date: 20150804
  Transmission Date: 20151125
  Serious: No
  Sender: FDA-Public Use
  Company Number: US-GILEAD-2009-0022136

PATIENT
  Age: 68 Year
  Sex: Female
  Weight: 95.25 kg

DRUGS (11)
  1. OXYGEN. [Concomitant]
     Active Substance: OXYGEN
  2. INDAPAMIDE. [Concomitant]
     Active Substance: INDAPAMIDE
  3. TRANDOLAPRIL. [Concomitant]
     Active Substance: TRANDOLAPRIL
  4. SPIRIVA [Concomitant]
     Active Substance: TIOTROPIUM BROMIDE MONOHYDRATE
  5. CENTRUM SILVER [Concomitant]
     Active Substance: VITAMINS
  6. ECOTRIN [Concomitant]
     Active Substance: ASPIRIN
  7. VITAMIN D [Concomitant]
     Active Substance: CHOLECALCIFEROL
  8. PEPCID AC [Concomitant]
     Active Substance: FAMOTIDINE
  9. LETAIRIS [Suspect]
     Active Substance: AMBRISENTAN
     Indication: PULMONARY ARTERIAL HYPERTENSION
     Route: 048
     Dates: start: 20090406
  10. ADVAIR HFA [Concomitant]
     Active Substance: FLUTICASONE PROPIONATE\SALMETEROL XINAFOATE
  11. PREVACID [Concomitant]
     Active Substance: LANSOPRAZOLE

REACTIONS (2)
  - Nasal congestion [Unknown]
  - Ear congestion [Unknown]
